FAERS Safety Report 18559934 (Version 1)
Quarter: 2020Q4

REPORT INFORMATION
  Report Type: Report from Study
  Country: EG (occurrence: EG)
  Receive Date: 20201130
  Receipt Date: 20201130
  Transmission Date: 20210114
  Serious: Yes (Other)
  Sender: FDA-Public Use
  Company Number: NVSC2020EG310870

PATIENT
  Age: 62 Year
  Sex: Female

DRUGS (2)
  1. ATENO [Concomitant]
     Indication: PRODUCT USED FOR UNKNOWN INDICATION
     Dosage: 1 DF, QD (1 TAB ON AN EMPTY STOMACH IN THE MORNING EVERY DAY)
     Route: 065
     Dates: start: 2010
  2. GLIVEC [Suspect]
     Active Substance: IMATINIB MESYLATE
     Indication: CHRONIC MYELOID LEUKAEMIA
     Dosage: 400 MG, QD
     Route: 065
     Dates: start: 2008

REACTIONS (8)
  - White blood cell count decreased [Not Recovered/Not Resolved]
  - Abdominal pain [Recovered/Resolved]
  - Anaemia [Not Recovered/Not Resolved]
  - Headache [Recovered/Resolved]
  - Balance disorder [Recovering/Resolving]
  - Fall [Recovering/Resolving]
  - Decreased immune responsiveness [Not Recovered/Not Resolved]
  - Product availability issue [Unknown]
